FAERS Safety Report 16538541 (Version 3)
Quarter: 2019Q3

REPORT INFORMATION
  Report Type: Spontaneous
  Country: JP (occurrence: JP)
  Receive Date: 20190708
  Receipt Date: 20190925
  Transmission Date: 20191004
  Serious: Yes (Death)
  Sender: FDA-Public Use
  Company Number: JP-BEH-2019104194

PATIENT
  Age: 44 Year
  Sex: Female
  Weight: 44.2 kg

DRUGS (6)
  1. NOVOSEVEN [Suspect]
     Active Substance: COAGULATION FACTOR VIIA RECOMBINANT HUMAN
     Indication: HAEMORRHAGE
  2. PLATELETS [Concomitant]
     Active Substance: HUMAN PLATELET, ALLOGENIC
     Dosage: 250 MILLILITER
     Route: 065
     Dates: start: 20181219, end: 20181220
  3. NOVOSEVEN [Suspect]
     Active Substance: COAGULATION FACTOR VIIA RECOMBINANT HUMAN
     Indication: HAEMOSTASIS
     Dosage: 5 MILLIGRAM, DAILY
     Route: 042
     Dates: start: 20181219, end: 20181219
  4. FRESH FROZEN PLASMA [Concomitant]
     Active Substance: HUMAN PLASMA
     Dosage: 3360 MILLILITER
     Route: 065
     Dates: start: 20181219, end: 20181220
  5. RED BLOOD CELLS [Concomitant]
     Active Substance: HUMAN RED BLOOD CELL
     Dosage: 1960 MILLILITER
     Route: 065
     Dates: start: 20181219, end: 20181220
  6. FIBROGAMMIN P [Suspect]
     Active Substance: FACTOR XIII CONCENTRATE (HUMAN)
     Indication: HAEMOSTASIS
     Dosage: 20 MILLILITER, DAILY
     Route: 042
     Dates: start: 20181219, end: 20181219

REACTIONS (8)
  - Depressed level of consciousness [Fatal]
  - Pupillary reflex impaired [Fatal]
  - Mydriasis [Fatal]
  - Brain oedema [Fatal]
  - Monoplegia [Fatal]
  - Thrombotic cerebral infarction [Fatal]
  - Brain compression [Fatal]
  - Cardiac arrest [Fatal]

NARRATIVE: CASE EVENT DATE: 20181220
